FAERS Safety Report 9935668 (Version 6)
Quarter: 2014Q2

REPORT INFORMATION
  Report Type: Report from Study
  Country: ES (occurrence: ES)
  Receive Date: 20140228
  Receipt Date: 20140417
  Transmission Date: 20141212
  Serious: Yes (Disabling, Other)
  Sender: FDA-Public Use
  Company Number: ES-ONYX-2013-1632

PATIENT
  Age: 69 Year
  Sex: Female

DRUGS (14)
  1. CARFILZOMIB [Suspect]
     Indication: PLASMA CELL MYELOMA
     Route: 042
     Dates: start: 20130730, end: 20130731
  2. CARFILZOMIB [Suspect]
     Route: 042
     Dates: start: 20130806, end: 20130814
  3. CARFILZOMIB [Suspect]
     Route: 042
     Dates: start: 20130827
  4. DEXAMETHASONE [Suspect]
     Indication: PLASMA CELL MYELOMA
     Route: 048
     Dates: start: 20130730, end: 20130925
  5. DEXAMETHASONE [Suspect]
     Route: 048
     Dates: start: 20131001
  6. VALACICLOVIR [Concomitant]
     Indication: ANTIVIRAL PROPHYLAXIS
     Route: 048
     Dates: start: 20130730
  7. SEPTRIM FORTE [Concomitant]
     Indication: INFECTION PROPHYLAXIS
     Route: 048
     Dates: start: 20130730
  8. LOSARTAN [Concomitant]
     Indication: HYPERTENSION
     Route: 048
     Dates: start: 20121228, end: 20131127
  9. OMEPRAZOLE [Concomitant]
     Indication: PROPHYLAXIS AGAINST GASTROINTESTINAL ULCER
     Route: 048
     Dates: start: 20130227
  10. BISOPROLOL [Concomitant]
     Indication: HYPERTENSION
     Route: 048
     Dates: start: 20130508
  11. SIMVASTATINE [Concomitant]
     Indication: HYPERLIPIDAEMIA
     Route: 048
     Dates: start: 20130523
  12. FENTANYL [Concomitant]
     Indication: BACK PAIN
     Route: 048
     Dates: start: 20130813
  13. INSULINE (NOVOMIX) [Concomitant]
     Indication: DIABETES MELLITUS
     Route: 058
     Dates: start: 20130903
  14. LORAZEPAM [Concomitant]
     Indication: INSOMNIA
     Route: 048
     Dates: start: 20130730

REACTIONS (2)
  - Deep vein thrombosis [Not Recovered/Not Resolved]
  - Pulmonary embolism [Not Recovered/Not Resolved]
